FAERS Safety Report 8460938-5 (Version None)
Quarter: 2012Q2

REPORT INFORMATION
  Report Type: 
  Country: None (occurrence: None)
  Receive Date: 20120625
  Receipt Date: 20120613
  Transmission Date: 20120825
  Serious: Yes (Hospitalization)
  Sender: FDA-Public Use
  Company Number: BR-BIOGENIDEC-2012BI021690

PATIENT
  Age: 15 Year
  Sex: Female

DRUGS (1)
  1. AVONEX [Suspect]
     Indication: MULTIPLE SCLEROSIS
     Route: 030
     Dates: start: 20120101, end: 20120601

REACTIONS (7)
  - GENERAL SYMPTOM [None]
  - VISION BLURRED [None]
  - NASOPHARYNGITIS [None]
  - BODY TEMPERATURE FLUCTUATION [None]
  - NEURITIS [None]
  - VISUAL IMPAIRMENT [None]
  - EYE DISORDER [None]
